FAERS Safety Report 10102981 (Version 2)
Quarter: 2014Q2

REPORT INFORMATION
  Report Type: Spontaneous
  Country: US (occurrence: US)
  Receive Date: 20140424
  Receipt Date: 20140424
  Transmission Date: 20141212
  Serious: No
  Sender: FDA-Public Use
  Company Number: US-BRISTOL-MYERS SQUIBB COMPANY-20029328

PATIENT
  Age: 77 Year
  Sex: Male

DRUGS (5)
  1. ELIQUIS [Suspect]
  2. FLOMAX [Concomitant]
  3. MULTAQ [Concomitant]
  4. TAMSULOSIN [Concomitant]
  5. PRAVASTATIN SODIUM [Concomitant]

REACTIONS (1)
  - Tremor [Unknown]
